FAERS Safety Report 12612727 (Version 1)
Quarter: 2016Q3

REPORT INFORMATION
  Report Type: Report from Study
  Country: US (occurrence: US)
  Receive Date: 20160801
  Receipt Date: 20160801
  Transmission Date: 20161109
  Serious: No
  Sender: FDA-Public Use
  Company Number: US-AMGEN-USASL2016097513

PATIENT
  Age: 48 Year
  Sex: Female

DRUGS (3)
  1. ENBREL [Suspect]
     Active Substance: ETANERCEPT
     Indication: DYSHIDROTIC ECZEMA
  2. ENBREL [Suspect]
     Active Substance: ETANERCEPT
     Indication: DERMATITIS
     Dosage: UNK UNK, TWICE WEEKLY 3 MONTHS THEN WEEKLY
     Route: 065
  3. ENBREL [Suspect]
     Active Substance: ETANERCEPT
     Indication: DYSHIDROTIC ECZEMA

REACTIONS (1)
  - Off label use [Unknown]
